FAERS Safety Report 5716098-4 (Version None)
Quarter: 2008Q2

REPORT INFORMATION
  Report Type: 
  Country: None (occurrence: None)
  Receive Date: 20080423
  Receipt Date: 20080423
  Transmission Date: 20081010
  Serious: Yes (Other)
  Sender: FDA-Public Use
  Company Number: None

PATIENT
  Sex: Female
  Weight: 70.25 kg

DRUGS (1)
  1. PROLEUKIN [Suspect]

REACTIONS (8)
  - ALANINE AMINOTRANSFERASE INCREASED [None]
  - ANXIETY [None]
  - ASPARTATE AMINOTRANSFERASE INCREASED [None]
  - HALLUCINATION, VISUAL [None]
  - HYPOXIA [None]
  - POLYURIA [None]
  - TACHYCARDIA [None]
  - URINE OUTPUT INCREASED [None]
